FAERS Safety Report 8852282 (Version 2)
Quarter: 2013Q1

REPORT INFORMATION
  Report Type: Spontaneous
  Country: ES (occurrence: None)
  Receive Date: 20121017
  Receipt Date: 20121109
  Transmission Date: 20140127
  Serious: Yes (Other)
  Sender: FDA-Public Use
  Company Number: AUR-APL-2012-04394

PATIENT
  Age: 48 Year
  Sex: Female

DRUGS (2)
  1. LAMOTRIGINE (LAMOTRIGINE) [Suspect]
     Indication: EPILEPSY
     Dates: start: 2006
  2. LEVETIRACETAM [Concomitant]

REACTIONS (3)
  - Rash [None]
  - Pruritus [None]
  - Dermatitis [None]
